FAERS Safety Report 6877248-X (Version None)
Quarter: 2010Q3

REPORT INFORMATION
  Report Type: 
  Country: None (occurrence: None)
  Receive Date: 20100727
  Receipt Date: 20091229
  Transmission Date: 20110219
  Serious: No
  Sender: FDA-Public Use
  Company Number: US-ABBOTT-09P-163-0591888-00

PATIENT
  Sex: Female
  Weight: 59.02 kg

DRUGS (7)
  1. SYNTHROID [Suspect]
     Indication: BLOOD THYROID STIMULATING HORMONE INCREASED
     Route: 048
     Dates: start: 19940101, end: 20020101
  2. SYNTHROID [Suspect]
     Indication: HYPOTHYROIDISM
     Route: 048
     Dates: start: 20090501
  3. VITAMIN D2 [Suspect]
     Indication: ALOPECIA
     Route: 048
     Dates: start: 20090614, end: 20090705
  4. VITAMIN D3 [Suspect]
     Indication: ALOPECIA
     Route: 048
     Dates: start: 20090706, end: 20090716
  5. VITAMIN D [Concomitant]
     Indication: ALOPECIA
     Route: 048
  6. CALCIUM [Concomitant]
     Indication: PRODUCT USED FOR UNKNOWN INDICATION
     Route: 048
  7. IRON [Concomitant]
     Indication: PRODUCT USED FOR UNKNOWN INDICATION
     Route: 048

REACTIONS (8)
  - ALOPECIA [None]
  - BLOOD PRESSURE INCREASED [None]
  - BONE PAIN [None]
  - HEART RATE INCREASED [None]
  - PAIN IN EXTREMITY [None]
  - SKIN REACTION [None]
  - TOOTHACHE [None]
  - VITAMIN D DECREASED [None]
